FAERS Safety Report 6264553-3 (Version None)
Quarter: 2009Q3

REPORT INFORMATION
  Report Type: 
  Country: None (occurrence: None)
  Receive Date: 20090710
  Receipt Date: 20090707
  Transmission Date: 20100115
  Serious: Yes (Other)
  Sender: FDA-Public Use
  Company Number: MX-ABBOTT-09P-107-0584237-00

PATIENT
  Age: 41 Year
  Sex: Female
  Weight: 59 kg

DRUGS (6)
  1. NIASPAN [Suspect]
     Indication: DYSLIPIDAEMIA
     Route: 048
     Dates: start: 20090628
  2. NIASPAN [Suspect]
     Indication: HYPERCHOLESTEROLAEMIA
  3. VANOLOT DEPOT [Concomitant]
     Indication: VENOUS INSUFFICIENCY
     Route: 048
     Dates: start: 20090619
  4. MACRODANTINA [Concomitant]
     Indication: URINARY TRACT INFECTION
     Dates: start: 20090620, end: 20090628
  5. PANKREOFLAT [Concomitant]
     Indication: IRRITABLE BOWEL SYNDROME
     Route: 048
  6. NEXIUM [Concomitant]
     Indication: GASTRITIS
     Route: 048

REACTIONS (5)
  - EYELID OEDEMA [None]
  - LIP OEDEMA [None]
  - OEDEMA PERIPHERAL [None]
  - PRURITUS GENERALISED [None]
  - SKIN BURNING SENSATION [None]
